FAERS Safety Report 9133604 (Version 1)
Quarter: 2013Q1

REPORT INFORMATION
  Report Type: Spontaneous
  Country: IT (occurrence: IT)
  Receive Date: 20130301
  Receipt Date: 20130301
  Transmission Date: 20140127
  Serious: Yes (Hospitalization)
  Sender: FDA-Public Use
  Company Number: IT-B.I. PHARMACEUTICALS,INC./RIDGEFIELD-2013-IT-00138IT

PATIENT
  Age: 69 Year
  Sex: Male

DRUGS (3)
  1. PRAMIPEXOLE [Suspect]
     Indication: PARKINSON^S DISEASE
     Dosage: 0.7 MG
     Route: 048
     Dates: start: 20120103, end: 20130102
  2. SINEMET [Suspect]
     Indication: PARKINSON^S DISEASE
     Dosage: 500 MG
     Route: 048
     Dates: start: 20120103, end: 20130102
  3. CLOZAPINA [Suspect]
     Indication: PARKINSON^S DISEASE
     Dosage: 100 MG
     Route: 048
     Dates: start: 20120103, end: 20130102

REACTIONS (1)
  - Sopor [Not Recovered/Not Resolved]
